FAERS Safety Report 22762915 (Version 8)
Quarter: 2024Q1

REPORT INFORMATION
  Report Type: Report from Study
  Country: BD (occurrence: BD)
  Receive Date: 20230728
  Receipt Date: 20240229
  Transmission Date: 20240409
  Serious: Yes (Hospitalization, Other)
  Sender: FDA-Public Use
  Company Number: BD-002147023-NVSC2023BD165267

PATIENT
  Age: 59 Year
  Sex: Male
  Weight: 61 kg

DRUGS (2)
  1. ENTRESTO [Suspect]
     Active Substance: SACUBITRIL\VALSARTAN
     Indication: Cardiac failure chronic
     Dosage: 50 MG
     Route: 048
     Dates: start: 202301
  2. CLONAZEPAM [Concomitant]
     Active Substance: CLONAZEPAM
     Indication: Product used for unknown indication
     Dosage: UNK
     Route: 065

REACTIONS (15)
  - Seizure [Recovering/Resolving]
  - Anaemia [Recovered/Resolved]
  - Hypokalaemia [Recovered/Resolved]
  - Diabetes mellitus [Unknown]
  - Blood glucose fluctuation [Unknown]
  - Blood pressure fluctuation [Unknown]
  - Nocturia [Unknown]
  - Blood glucose increased [Unknown]
  - Blood potassium decreased [Recovered/Resolved]
  - Muscle spasms [Unknown]
  - Depression [Unknown]
  - Decreased appetite [Recovered/Resolved]
  - Blood pressure increased [Not Recovered/Not Resolved]
  - Weight decreased [Recovered/Resolved]
  - Dyspnoea [Recovering/Resolving]

NARRATIVE: CASE EVENT DATE: 20230601
